FAERS Safety Report 9894418 (Version 2)
Quarter: 2014Q3

REPORT INFORMATION
  Report Type: Spontaneous
  Country: US (occurrence: US)
  Receive Date: 20140213
  Receipt Date: 20140807
  Transmission Date: 20150326
  Serious: Yes (Other)
  Sender: FDA-Public Use
  Company Number: US-009507513-1402USA005777

PATIENT
  Sex: Female

DRUGS (1)
  1. NUVARING [Suspect]
     Active Substance: ETHINYL ESTRADIOL\ETONOGESTREL
     Indication: CONTRACEPTION
     Route: 067

REACTIONS (5)
  - Pulmonary embolism [Unknown]
  - Thyroid disorder [Unknown]
  - Hypertension [Unknown]
  - Fungal infection [Unknown]
  - Sexually transmitted disease [Unknown]

NARRATIVE: CASE EVENT DATE: 2003
